FAERS Safety Report 8470642 (Version 2)
Quarter: 2013Q1

REPORT INFORMATION
  Report Type: Spontaneous
  Country: US (occurrence: US)
  Receive Date: 20120321
  Receipt Date: 20130118
  Transmission Date: 20140127
  Serious: No
  Sender: FDA-Public Use
  Company Number: US-PFIZER INC-2012070090

PATIENT
  Age: 59 Year
  Sex: Female
  Weight: 122 kg

DRUGS (11)
  1. LYRICA [Suspect]
     Indication: FIBROMYALGIA
     Dosage: 75 MG, 2X/DAY
     Route: 048
     Dates: start: 201109
  2. LYRICA [Suspect]
     Indication: BACK PAIN
     Dosage: 150 MG, 2X/DAY
     Route: 048
     Dates: start: 20120306
  3. LYRICA [Suspect]
     Indication: OSTEOARTHRITIS
  4. MOTRIN [Suspect]
     Dosage: UNK
  5. DETROL LA [Suspect]
     Indication: URINARY INCONTINENCE
     Dosage: 4 MG, 1X/DAY
     Route: 048
     Dates: start: 20120104
  6. CYMBALTA [Suspect]
     Dosage: UNK
  7. TYLENOL [Suspect]
     Dosage: UNK
  8. ALEVE [Suspect]
     Dosage: UNK
  9. ATENOLOL [Concomitant]
     Indication: ESSENTIAL HYPERTENSION
     Dosage: 50 MG, 2X/DAY AS DIRECTED
     Route: 048
     Dates: start: 20110819
  10. LISINOPRIL [Concomitant]
     Indication: ESSENTIAL HYPERTENSION
     Dosage: 20 MG, 1X/DAY
     Route: 048
     Dates: start: 20120710
  11. MOTRIN IB [Concomitant]
     Indication: CONTUSION
     Dosage: 200 MG, TAKE AS DIRECTED
     Route: 048

REACTIONS (2)
  - Drug ineffective [Unknown]
  - Dysphemia [Recovered/Resolved]
